FAERS Safety Report 7099640-3 (Version None)
Quarter: 2010Q4

REPORT INFORMATION
  Report Type: 
  Country: None (occurrence: None)
  Receive Date: 20101112
  Receipt Date: 20081028
  Transmission Date: 20110411
  Serious: No
  Sender: FDA-Public Use
  Company Number: US-KINGPHARMUSA00001-K200801250

PATIENT
  Age: 53 Year
  Sex: Male

DRUGS (9)
  1. AVINZA [Suspect]
     Indication: PAIN
     Dosage: 180 MG, QD
     Route: 048
     Dates: end: 20081024
  2. AVINZA [Suspect]
     Dosage: 90 MG, QD
     Route: 048
     Dates: start: 20080903, end: 20080905
  3. AVINZA [Suspect]
     Dosage: 120 MG, QD
     Route: 048
     Dates: start: 20080905
  4. ADVAIR DISKUS 100/50 [Concomitant]
  5. SOMA [Concomitant]
  6. ALLOPURINOL [Concomitant]
  7. DARVOCET [Concomitant]
  8. SINGULAIR [Concomitant]
  9. SYNTHROID [Concomitant]
     Dosage: UNK, UNK

REACTIONS (1)
  - NAUSEA [None]
